FAERS Safety Report 5265736-1 (Version None)
Quarter: 2007Q1

REPORT INFORMATION
  Report Type: 
  Country: None (occurrence: None)
  Receive Date: 20061213
  Receipt Date: 20030203
  Transmission Date: 20070707
  Serious: No
  Sender: FDA-Public Use
  Company Number: 2003UW01617

PATIENT
  Age: 80 Year
  Sex: Female
  Weight: 47.1741 kg

DRUGS (9)
  1. NOLVADEX [Suspect]
     Indication: BREAST CANCER
     Dosage: 20 MG DAILY PO
     Route: 048
     Dates: start: 19980603
  2. SINEMET [Concomitant]
  3. CELEBREX [Concomitant]
  4. CELEXA [Concomitant]
  5. MIRAPEX [Concomitant]
  6. DARVOCET-N 100 [Concomitant]
  7. ASACOL [Concomitant]
  8. NORTRIPTYLINE HCL [Concomitant]
  9. IMITREX [Concomitant]

REACTIONS (1)
  - CATARACT [None]
